FAERS Safety Report 10614318 (Version 1)
Quarter: 2014Q4

REPORT INFORMATION
  Report Type: Report from Study
  Country: US (occurrence: US)
  Receive Date: 20141128
  Receipt Date: 20141128
  Transmission Date: 20150529
  Serious: Yes (Other)
  Sender: FDA-Public Use
  Company Number: PHEH2014US023218

PATIENT
  Sex: Female

DRUGS (1)
  1. EXJADE [Suspect]
     Active Substance: DEFERASIROX
     Indication: AUTOIMMUNE HAEMOLYTIC ANAEMIA
     Dosage: 1 DF, QD
     Route: 065

REACTIONS (1)
  - Bladder cancer [Unknown]
